FAERS Safety Report 7386983-9 (Version None)
Quarter: 2011Q1

REPORT INFORMATION
  Report Type: 
  Country: None (occurrence: None)
  Receive Date: 20110331
  Receipt Date: 20110324
  Transmission Date: 20110831
  Serious: Yes (Life-Threatening, Hospitalization)
  Sender: FDA-Public Use
  Company Number: US-GILEAD-2010-0033281

PATIENT
  Sex: Male

DRUGS (4)
  1. CLONIDINE [Concomitant]
  2. TORSEMIDE [Concomitant]
  3. HYDRALAZINE HCL [Concomitant]
  4. LETAIRIS [Suspect]
     Indication: PULMONARY HYPERTENSION
     Route: 048
     Dates: start: 20101011

REACTIONS (6)
  - NASAL CONGESTION [None]
  - FLUID RETENTION [None]
  - DYSPNOEA [None]
  - SYNCOPE [None]
  - OEDEMA [None]
  - OEDEMA PERIPHERAL [None]
